FAERS Safety Report 11574409 (Version 1)
Quarter: 2015Q3

REPORT INFORMATION
  Report Type: Spontaneous
  Country: MX (occurrence: MX)
  Receive Date: 20150930
  Receipt Date: 20150930
  Transmission Date: 20151125
  Serious: Yes (Hospitalization, Other)
  Sender: FDA-Public Use
  Company Number: MX-AMGEN-MEXSP2015100094

PATIENT
  Age: 25 Year
  Sex: Female
  Weight: 53.5 kg

DRUGS (3)
  1. ENBREL [Suspect]
     Active Substance: ETANERCEPT
     Indication: PRODUCT USED FOR UNKNOWN INDICATION
     Dosage: 25 MG, 2X/WEEK
     Route: 058
     Dates: start: 201401
  2. ARALEN [Concomitant]
     Active Substance: CHLOROQUINE PHOSPHATE
     Indication: SYSTEMIC LUPUS ERYTHEMATOSUS
     Dosage: UNK
  3. METICORTEN [Concomitant]
     Active Substance: PREDNISONE
     Indication: SYSTEMIC LUPUS ERYTHEMATOSUS
     Dosage: UNK

REACTIONS (10)
  - Depression [Recovering/Resolving]
  - Gastric ulcer [Unknown]
  - Joint abscess [Unknown]
  - Off label use [Unknown]
  - Synovial rupture [Unknown]
  - Cartilage injury [Unknown]
  - Arthritis salmonella [Unknown]
  - Weight decreased [Recovered/Resolved]
  - Joint swelling [Unknown]
  - Memory impairment [Unknown]

NARRATIVE: CASE EVENT DATE: 2014
